FAERS Safety Report 13533154 (Version 2)
Quarter: 2017Q2

REPORT INFORMATION
  Report Type: Spontaneous
  Country: IT (occurrence: IT)
  Receive Date: 20170510
  Receipt Date: 20170512
  Transmission Date: 20170830
  Serious: Yes (Hospitalization)
  Sender: FDA-Public Use
  Company Number: IT-SA-2017SA082716

PATIENT
  Age: 81 Year
  Sex: Female

DRUGS (11)
  1. TARGIN [Suspect]
     Active Substance: NALOXONE HYDROCHLORIDE\OXYCODONE HYDROCHLORIDE
     Indication: PAIN IN EXTREMITY
     Dosage: DOSE:3 UNIT(S)
     Route: 048
     Dates: start: 20170207, end: 20170222
  2. DEPALGOS [Suspect]
     Active Substance: ACETAMINOPHEN\OXYCODONE HYDROCHLORIDE
     Indication: PAIN IN EXTREMITY
     Dosage: DOSE:5 UNIT(S)
     Route: 048
     Dates: start: 20170207, end: 20170222
  3. ACETYLSALICYLIC ACID [Concomitant]
     Active Substance: ASPIRIN
     Route: 048
  4. PLAVIX [Suspect]
     Active Substance: CLOPIDOGREL BISULFATE
     Indication: THROMBOSIS PROPHYLAXIS
     Dosage: DOSE:1 UNIT(S)
     Route: 048
     Dates: start: 20160101, end: 20170222
  5. TORVAST [Concomitant]
     Active Substance: ATORVASTATIN
     Route: 048
  6. CONGESCOR [Concomitant]
     Active Substance: BISOPROLOL
     Route: 048
  7. CALCIPARINE [Concomitant]
     Active Substance: HEPARIN CALCIUM
     Route: 058
  8. PANTORC [Concomitant]
     Active Substance: PANTOPRAZOLE SODIUM
     Route: 048
  9. LYRICA [Suspect]
     Active Substance: PREGABALIN
     Indication: PAIN IN EXTREMITY
     Dosage: DOSE:3 UNIT(S)
     Route: 048
     Dates: start: 20170207, end: 20170222
  10. SERTRALINE [Concomitant]
     Active Substance: SERTRALINE HYDROCHLORIDE
     Route: 048
  11. LEVOPRAID [Concomitant]
     Active Substance: SULPIRIDE
     Route: 048

REACTIONS (4)
  - Dyskinesia [Unknown]
  - Vertigo [Unknown]
  - Loss of consciousness [Unknown]
  - Nausea [Unknown]

NARRATIVE: CASE EVENT DATE: 20170222
